FAERS Safety Report 5004994-5 (Version None)
Quarter: 2006Q1

REPORT INFORMATION
  Report Type: 
  Country: None (occurrence: None)
  Receive Date: 20060324
  Receipt Date: 20050928
  Transmission Date: 20060701
  Serious: Yes (Hospitalization)
  Sender: FDA-Public Use
  Company Number: HQWYE743729SEP05

PATIENT
  Age: 55 Year
  Sex: Female
  Weight: 127.57 kg

DRUGS (4)
  1. LODINE [Suspect]
     Indication: OSTEOARTHRITIS
     Dosage: 300 MG 3X PER 1 DAY, ORAL
     Route: 048
     Dates: start: 20050401, end: 20050923
  2. LEVOXYL [Concomitant]
  3. LISINOPRIL [Concomitant]
  4. KLONOPIN [Concomitant]

REACTIONS (1)
  - HEPATIC NECROSIS [None]
